FAERS Safety Report 4300974-3 (Version None)
Quarter: 2004Q1

REPORT INFORMATION
  Report Type: 
  Country: None (occurrence: None)
  Receive Date: 20040218
  Receipt Date: 20040113
  Transmission Date: 20041129
  Serious: No
  Sender: FDA-Public Use
  Company Number: 2004-01-0591

PATIENT

DRUGS (2)
  1. PEG-INTRON [Suspect]
     Indication: HEPATITIS C
     Route: 058
  2. REBETOL [Suspect]
     Indication: HEPATITIS C
     Route: 048

REACTIONS (1)
  - NEUTROPENIA [None]
